FAERS Safety Report 15356329 (Version 2)
Quarter: 2018Q4

REPORT INFORMATION
  Report Type: Spontaneous
  Country: CA (occurrence: CA)
  Receive Date: 20180906
  Receipt Date: 20181023
  Transmission Date: 20190204
  Serious: Yes (Other)
  Sender: FDA-Public Use
  Company Number: CA-TEVA-2018-CA-951938

PATIENT

DRUGS (1)
  1. EQUATE LENS CARE SYSTEM [Suspect]
     Active Substance: HYDROGEN PEROXIDE
     Dosage: STRENGTH: 3.3%/0.86%
     Route: 065

REACTIONS (2)
  - Product label issue [Unknown]
  - Eye burns [Unknown]
